FAERS Safety Report 8359482-5 (Version None)
Quarter: 2012Q2

REPORT INFORMATION
  Report Type: 
  Country: None (occurrence: None)
  Receive Date: 20120515
  Receipt Date: 20120504
  Transmission Date: 20120825
  Serious: Yes (Other)
  Sender: FDA-Public Use
  Company Number: US-ELI_LILLY_AND_COMPANY-US201205002641

PATIENT
  Sex: Female

DRUGS (8)
  1. HUMALOG [Suspect]
     Indication: DIABETES MELLITUS
     Dosage: UNK
  2. HUMALOG [Suspect]
  3. HUMALOG [Suspect]
  4. HUMULIN R [Suspect]
     Indication: DIABETES MELLITUS
     Dosage: UNK, PRN
     Dates: start: 19870101
  5. HUMALOG [Suspect]
  6. HUMALOG [Suspect]
  7. HUMALOG [Suspect]
  8. LEVEMIR [Concomitant]
     Indication: DIABETES MELLITUS

REACTIONS (3)
  - BLOOD GLUCOSE INCREASED [None]
  - RENAL IMPAIRMENT [None]
  - DRUG INEFFECTIVE [None]
